FAERS Safety Report 14819798 (Version 1)
Quarter: 2018Q2

REPORT INFORMATION
  Report Type: Spontaneous
  Country: IT (occurrence: IT)
  Receive Date: 20180427
  Receipt Date: 20180427
  Transmission Date: 20180711
  Serious: Yes (Hospitalization)
  Sender: FDA-Public Use
  Company Number: IT-JNJFOC-20180431911

PATIENT
  Age: 80 Year
  Sex: Female

DRUGS (7)
  1. DUROGESIC [Suspect]
     Active Substance: FENTANYL
     Indication: OSTEOARTHRITIS
     Route: 062
     Dates: end: 20180207
  2. DUROGESIC [Suspect]
     Active Substance: FENTANYL
     Indication: OSTEOARTHRITIS
     Route: 062
     Dates: start: 201802
  3. DUROGESIC [Suspect]
     Active Substance: FENTANYL
     Indication: OSTEOARTHRITIS
     Route: 062
     Dates: start: 20170101
  4. ZYLORIC [Concomitant]
     Active Substance: ALLOPURINOL
     Route: 065
  5. IRBESARTAN. [Concomitant]
     Active Substance: IRBESARTAN
     Route: 065
  6. TORVAST [Concomitant]
     Active Substance: ATORVASTATIN
     Route: 065
  7. CARDIOASPIRIN [Concomitant]
     Active Substance: ASPIRIN
     Route: 065

REACTIONS (4)
  - Hypokalaemia [Unknown]
  - Hyponatraemia [Unknown]
  - Sopor [Unknown]
  - Decreased appetite [Unknown]

NARRATIVE: CASE EVENT DATE: 20180204
